FAERS Safety Report 7312410-3 (Version None)
Quarter: 2011Q1

REPORT INFORMATION
  Report Type: 
  Country: None (occurrence: None)
  Receive Date: 20110224
  Receipt Date: 20110208
  Transmission Date: 20110831
  Serious: Yes (Hospitalization, Other)
  Sender: FDA-Public Use
  Company Number: US-BAYER-201036565NA

PATIENT
  Sex: Female
  Weight: 135.96 kg

DRUGS (3)
  1. NSAID'S [Concomitant]
     Dosage: UNK
  2. YASMIN [Suspect]
     Indication: PREMENSTRUAL SYNDROME
     Dates: start: 20050301, end: 20061201
  3. YAZ [Suspect]
     Indication: PREMENSTRUAL SYNDROME
     Dates: start: 20050301, end: 20061201

REACTIONS (6)
  - BILE DUCT STONE [None]
  - PAIN [None]
  - CHOLELITHIASIS [None]
  - MOOD SWINGS [None]
  - HYPOVOLAEMIA [None]
  - ABDOMINAL PAIN UPPER [None]
